FAERS Safety Report 6993044-7 (Version None)
Quarter: 2010Q3

REPORT INFORMATION
  Report Type: 
  Country: None (occurrence: None)
  Receive Date: 20100917
  Receipt Date: 20100205
  Transmission Date: 20110219
  Serious: No
  Sender: FDA-Public Use
  Company Number: US-ASTRAZENECA-2010SE05653

PATIENT
  Sex: Male

DRUGS (1)
  1. SEROQUEL [Suspect]
     Route: 048

REACTIONS (4)
  - DELUSIONAL PERCEPTION [None]
  - DRUG DOSE OMISSION [None]
  - ILL-DEFINED DISORDER [None]
  - STRESS AT WORK [None]
